FAERS Safety Report 20261749 (Version 2)
Quarter: 2022Q1

REPORT INFORMATION
  Report Type: Spontaneous
  Country: US (occurrence: US)
  Receive Date: 20211231
  Receipt Date: 20220204
  Transmission Date: 20220423
  Serious: Yes (Life-Threatening, Hospitalization, Other)
  Sender: FDA-Public Use
  Company Number: US-TEVA-2021-US-1993083

PATIENT
  Age: 35 Year
  Sex: Male

DRUGS (14)
  1. ROCURONIUM [Suspect]
     Active Substance: ROCURONIUM BROMIDE
     Indication: Induction of anaesthesia
     Route: 042
  2. HERBALS\MITRAGYNINE [Suspect]
     Active Substance: HERBALS\MITRAGYNINE
     Indication: Toxicity to various agents
     Dosage: PILLS
     Route: 048
  3. HERBALS\MITRAGYNINE [Suspect]
     Active Substance: HERBALS\MITRAGYNINE
     Indication: Prophylaxis
  4. ETOMIDATE [Suspect]
     Active Substance: ETOMIDATE
     Indication: Induction of anaesthesia
     Route: 042
  5. SODIUM CHLORIDE [Concomitant]
     Active Substance: SODIUM CHLORIDE
     Indication: Product used for unknown indication
     Route: 040
  6. NALOXONE [Concomitant]
     Active Substance: NALOXONE
     Indication: Apnoea
     Route: 042
  7. NALOXONE [Concomitant]
     Active Substance: NALOXONE
     Indication: Haemodynamic instability
     Route: 042
  8. NALOXONE [Concomitant]
     Active Substance: NALOXONE
     Indication: Respiratory rate decreased
  9. KETAMINE [Concomitant]
     Active Substance: KETAMINE
     Indication: Agitation
     Route: 040
  10. KETAMINE [Concomitant]
     Active Substance: KETAMINE
     Indication: Hypotonia
     Route: 040
  11. KETAMINE [Concomitant]
     Active Substance: KETAMINE
     Indication: Haemodynamic instability
  12. NOREPINEPHRINE [Concomitant]
     Active Substance: NOREPINEPHRINE
     Indication: Hypotension
     Dosage: INITIAL DOSAGE NOT STATED
     Route: 041
  13. NOREPINEPHRINE [Concomitant]
     Active Substance: NOREPINEPHRINE
     Route: 041
  14. EPINEPHRINE [Concomitant]
     Active Substance: EPINEPHRINE
     Indication: Hypotension
     Route: 041

REACTIONS (18)
  - Agitation [Recovering/Resolving]
  - Pain [Recovering/Resolving]
  - Screaming [Recovering/Resolving]
  - Grimacing [Recovering/Resolving]
  - Aggression [Recovering/Resolving]
  - Muscle rigidity [Recovering/Resolving]
  - Muscle contractions involuntary [Recovering/Resolving]
  - Respiratory failure [Recovering/Resolving]
  - Cardiogenic shock [Recovering/Resolving]
  - Distributive shock [Recovering/Resolving]
  - Toxicity to various agents [Recovering/Resolving]
  - Overdose [Recovering/Resolving]
  - Apnoea [Recovering/Resolving]
  - Clonus [Recovering/Resolving]
  - Deafness neurosensory [Recovering/Resolving]
  - Metabolic acidosis [Unknown]
  - Hyperkalaemia [Unknown]
  - Cardio-respiratory arrest [Recovering/Resolving]
